FAERS Safety Report 11067557 (Version 1)
Quarter: 2015Q2

REPORT INFORMATION
  Report Type: Spontaneous
  Country: US (occurrence: None)
  Receive Date: 20150424
  Receipt Date: 20150424
  Transmission Date: 20150821
  Serious: Yes (Death)
  Sender: FDA-Public Use
  Company Number: None

PATIENT
  Age: 62 Year
  Sex: Male
  Weight: 127.46 kg

DRUGS (19)
  1. FERROUS SULFATE [Concomitant]
     Active Substance: FERROUS SULFATE\FERROUS SULFATE, DRIED
  2. CELEXA [Concomitant]
     Active Substance: CITALOPRAM HYDROBROMIDE
  3. NAMENDA [Suspect]
     Active Substance: MEMANTINE HYDROCHLORIDE
     Indication: MEMORY IMPAIRMENT
     Dosage: STARTED WITH 5MG, THEN 5MG + 10MG, WEEK 3 - 10MG + 5MG, MORNING + EVENING BY MOUTH
     Route: 048
     Dates: start: 20150204, end: 20150218
  4. VENTOLIN HFA [Concomitant]
     Active Substance: ALBUTEROL SULFATE
  5. LASIX [Concomitant]
     Active Substance: FUROSEMIDE
  6. COREG [Concomitant]
     Active Substance: CARVEDILOL
  7. ASPIRIN EC [Concomitant]
     Active Substance: ASPIRIN
  8. PROSCAR [Concomitant]
     Active Substance: FINASTERIDE
  9. INSULIN PEN NEEDLE [Concomitant]
  10. ONE TOUCH ULTRA STRIPS [Concomitant]
  11. LANTUS SOLOSTAR [Concomitant]
     Active Substance: INSULIN GLARGINE
  12. ATORVASTATIN CALCIUM. [Concomitant]
     Active Substance: ATORVASTATIN CALCIUM
  13. FOLIC ACID. [Concomitant]
     Active Substance: FOLIC ACID
  14. FLOMAX [Concomitant]
     Active Substance: TAMSULOSIN HYDROCHLORIDE
  15. LANCETS [Concomitant]
     Active Substance: DEVICE
  16. AMLODIPINE BESYLATE. [Concomitant]
     Active Substance: AMLODIPINE BESYLATE
  17. JANUMET XR [Concomitant]
     Active Substance: METFORMIN HYDROCHLORIDE\SITAGLIPTIN PHOSPHATE
  18. AMARYL [Concomitant]
     Active Substance: GLIMEPIRIDE
  19. PROTONIX [Concomitant]
     Active Substance: PANTOPRAZOLE SODIUM

REACTIONS (9)
  - Dyspnoea [None]
  - Loss of consciousness [None]
  - Malaise [None]
  - Renal failure [None]
  - Hypotension [None]
  - Pyrexia [None]
  - Fall [None]
  - Brain death [None]
  - Pulse absent [None]

NARRATIVE: CASE EVENT DATE: 20150218
